FAERS Safety Report 7015362-9 (Version None)
Quarter: 2010Q3

REPORT INFORMATION
  Report Type: 
  Country: None (occurrence: None)
  Receive Date: 20100922
  Receipt Date: 20100916
  Transmission Date: 20110219
  Serious: Yes (Death)
  Sender: FDA-Public Use
  Company Number: 2010US003804

PATIENT
  Age: 23 Year
  Sex: Female
  Weight: 74 kg

DRUGS (1)
  1. PROGRAF [Suspect]
     Indication: HEART TRANSPLANT
     Dosage: 1 MG, ORAL
     Route: 048

REACTIONS (1)
  - PULMONARY EMBOLISM [None]
